FAERS Safety Report 7384682-0 (Version None)
Quarter: 2011Q1

REPORT INFORMATION
  Report Type: 
  Country: None (occurrence: None)
  Receive Date: 20110330
  Receipt Date: 20110316
  Transmission Date: 20110831
  Serious: Yes (Hospitalization, Other)
  Sender: FDA-Public Use
  Company Number: PHHY2011JP21746

PATIENT
  Age: 24 Year
  Sex: Female
  Weight: 50 kg

DRUGS (115)
  1. STI571/CGP57148B [Suspect]
     Dosage: 600 MG, DAILY
     Route: 048
     Dates: start: 20090603, end: 20090610
  2. PREDONINE [Concomitant]
     Indication: ACUTE LYMPHOCYTIC LEUKAEMIA
     Dosage: 90 MG, UNK
     Route: 048
     Dates: start: 20090430, end: 20091103
  3. PREDONINE [Concomitant]
     Dosage: 20 MG, UNK
     Route: 042
     Dates: start: 20091028, end: 20091028
  4. BAKTAR [Concomitant]
     Dosage: 1 DF, UNK
     Route: 048
  5. BAKTAR [Concomitant]
     Dosage: 1 DF, UNK
     Route: 048
  6. LASIX [Concomitant]
     Indication: PROPHYLAXIS
     Dosage: 40 MG, UNK
     Route: 048
     Dates: start: 20091105, end: 20091114
  7. PRIMPERAN TAB [Concomitant]
     Dosage: 20 MG, UNK
     Route: 048
  8. PRIMPERAN TAB [Concomitant]
     Dosage: 10 MG, UNK
     Route: 048
  9. SAXIZON [Concomitant]
     Indication: ACUTE LYMPHOCYTIC LEUKAEMIA
     Dosage: 100 MG, UNK
     Route: 065
     Dates: start: 20090512, end: 20091013
  10. DIAMOX SODIUM [Concomitant]
     Indication: PROPHYLAXIS
     Dosage: 1000 MG, UNK
     Dates: start: 20090620, end: 20091001
  11. SOL-MELCORT [Concomitant]
     Dosage: 100 MG, UNK
  12. SOL-MELCORT [Concomitant]
     Dosage: 150 MG, UNK
  13. ATARAX [Concomitant]
     Indication: PROPHYLAXIS
     Dosage: 50 MG, UNK
     Dates: start: 20090512, end: 20090610
  14. ALLOPURINOL [Concomitant]
     Indication: PROPHYLAXIS
     Dosage: 100 MG, UNK
     Route: 048
     Dates: start: 20090430, end: 20090511
  15. MIYA-BM [Concomitant]
     Indication: PROPHYLAXIS
     Dosage: 1 G, UNK
     Dates: start: 20090605, end: 20090608
  16. STI571/CGP57148B [Suspect]
     Dosage: 600 MG, DAILY
     Route: 048
     Dates: start: 20091201, end: 20091218
  17. BAKTAR [Concomitant]
     Dosage: 1 DF, UNK
     Route: 048
  18. SILECE [Concomitant]
     Indication: PROPHYLAXIS
     Dosage: 2 MG, UNK
     Route: 048
     Dates: start: 20090514, end: 20100105
  19. PARIET [Concomitant]
     Dosage: 10 MG, UNK
     Route: 048
  20. PARIET [Concomitant]
     Dosage: 10 MG, UNK
     Route: 048
  21. MYSLEE [Concomitant]
     Indication: PROPHYLAXIS
     Dosage: 5 MG, UNK
     Route: 048
     Dates: start: 20090716, end: 20100105
  22. MYSLEE [Concomitant]
     Dosage: 10 MG, UNK
     Route: 048
  23. PRIMPERAN TAB [Concomitant]
     Dosage: 10 MG, UNK
     Route: 048
  24. CEFTRIAXONE [Concomitant]
     Indication: PROPHYLAXIS
     Dosage: 2 G, UNK
     Route: 041
     Dates: start: 20091223, end: 20091225
  25. LEUCOVORIN [Concomitant]
     Dosage: 24 MG, UNK
  26. SEROTONE [Concomitant]
     Indication: ACUTE LYMPHOCYTIC LEUKAEMIA
     Dosage: 10 MG, UNK
     Route: 041
     Dates: start: 20090717, end: 20090717
  27. PAXIL [Concomitant]
     Dosage: 15 MG, UNK
     Route: 048
  28. GASMOTIN [Concomitant]
     Dosage: 5 MG, UNK
     Route: 048
  29. STI571/CGP57148B [Suspect]
     Dosage: 400 MG, DAILY
     Route: 048
     Dates: start: 20100216, end: 20100315
  30. PREDONINE [Concomitant]
     Dosage: 5 MG, UNK
     Route: 048
  31. PREDONINE [Concomitant]
     Dosage: 2.5 MG, UNK
     Route: 048
  32. BAKTAR [Concomitant]
     Indication: PROPHYLAXIS
     Dosage: 1 DF, UNK
     Route: 048
     Dates: start: 20090515, end: 20100115
  33. SILECE [Concomitant]
     Dosage: 0.5 MG, UNK
     Route: 048
  34. PARIET [Concomitant]
     Dosage: 10 MG, UNK
     Route: 048
  35. ITRIZOLE [Concomitant]
     Dosage: 200 MG, UNK
     Route: 048
     Dates: start: 20090430, end: 20091202
  36. NAUZELIN [Concomitant]
     Dosage: 30 MG, UNK
     Route: 048
     Dates: start: 20090625, end: 20091218
  37. DIAMOX SODIUM [Concomitant]
     Dosage: 500 MG, UNK
  38. RAMELTEON [Concomitant]
     Indication: ACUTE LYMPHOCYTIC LEUKAEMIA
     Dosage: 0.3 MG, UNK
     Dates: start: 20090619, end: 20091001
  39. CONTOMIN [Concomitant]
     Dosage: 10 MG, UNK
     Route: 042
  40. CONTOMIN [Concomitant]
     Dosage: 10 MG, UNK
     Route: 042
  41. FRAGMIN [Concomitant]
     Indication: PROPHYLAXIS
     Dosage: 2000 DF, UNK
     Dates: start: 20090515, end: 20090528
  42. HUMULIN R [Concomitant]
     Dosage: 5 DF, UNK
  43. PAXIL [Concomitant]
     Dosage: 30 MG, UNK
     Route: 048
  44. CLARITHROMYCIN [Concomitant]
     Indication: PROPHYLAXIS
     Dosage: 400 MG, UNK
     Route: 048
     Dates: start: 20090530, end: 20090606
  45. STI571/CGP57148B [Suspect]
     Dosage: 600 MG, DAILY
     Route: 048
     Dates: start: 20090622, end: 20090709
  46. STI571/CGP57148B [Suspect]
     Dosage: 600 MG, DAILY
     Route: 048
     Dates: start: 20091029, end: 20091117
  47. PRIMPERAN TAB [Concomitant]
     Dosage: 20 MG, UNK
     Route: 048
  48. PRIMPERAN TAB [Concomitant]
     Dosage: 20 MG, UNK
     Route: 048
  49. LEUCOVORIN [Concomitant]
     Dosage: 72 MG, UNK
  50. LEUCOVORIN [Concomitant]
     Dosage: 72 MG, UNK
  51. CONTOMIN [Concomitant]
     Dosage: 10 MG, UNK
     Route: 042
  52. HUMULIN R [Concomitant]
     Indication: PROPHYLAXIS
     Dosage: 10 DF, UNK
     Dates: start: 20090506, end: 20090509
  53. HUMULIN R [Concomitant]
     Dosage: 5 DF, UNK
  54. PAXIL [Concomitant]
     Dosage: 20 MG, UNK
     Route: 048
  55. GASMOTIN [Concomitant]
     Dosage: 15 MG, UNK
     Route: 048
  56. FOLIAMIN [Concomitant]
     Indication: PROPHYLAXIS
     Dosage: 15 MG, UNK
     Route: 048
     Dates: start: 20090515, end: 20090527
  57. SELBEX [Concomitant]
     Indication: PROPHYLAXIS
     Dosage: 150 MG, UNK
     Route: 048
     Dates: start: 20090602, end: 20090814
  58. TRANSAMIN [Concomitant]
     Indication: PROPHYLAXIS
     Dosage: 750 MG, UNK
     Route: 048
     Dates: start: 20090628, end: 20090630
  59. PREDONINE [Concomitant]
     Dosage: 5 MG, UNK
     Route: 048
  60. PREDONINE [Concomitant]
     Dosage: 2.5 MG, UNK
     Route: 048
  61. PARIET [Concomitant]
     Indication: PROPHYLAXIS
     Dosage: 10 MG, UNK
     Route: 048
     Dates: start: 20090430, end: 20100106
  62. FUNGUARD [Concomitant]
     Indication: PROPHYLAXIS
     Route: 041
     Dates: start: 20091202, end: 20091215
  63. PRIMPERAN TAB [Concomitant]
     Indication: ACUTE LYMPHOCYTIC LEUKAEMIA
     Dosage: 10 MG, UNK
     Dates: start: 20090516, end: 20090702
  64. PRIMPERAN TAB [Concomitant]
     Dosage: 10 MG, UNK
     Route: 048
  65. RAMELTEON [Concomitant]
     Dosage: 0.3 MG, UNK
  66. SOL-MELCORT [Concomitant]
     Indication: ACUTE LYMPHOCYTIC LEUKAEMIA
     Dosage: 150 MG, UNK
     Dates: start: 20090619, end: 20091001
  67. SOL-MELCORT [Concomitant]
     Dosage: 150 MG, UNK
  68. SOL-MELCORT [Concomitant]
     Dosage: 150 MG, UNK
  69. PAXIL [Concomitant]
     Dosage: 20 MG, UNK
     Route: 048
  70. STI571/CGP57148B [Suspect]
     Indication: ACUTE LYMPHOCYTIC LEUKAEMIA
     Dosage: 600 MG, DAILY
     Route: 048
     Dates: start: 20090507, end: 20090526
  71. STI571/CGP57148B [Suspect]
     Dosage: 300 MG, DAILY
     Route: 048
     Dates: start: 20090527, end: 20090528
  72. PREDONINE [Concomitant]
     Dosage: 5 MG, UNK
     Route: 048
  73. SILECE [Concomitant]
     Dosage: 1 MG, UNK
     Route: 048
  74. SILECE [Concomitant]
     Dosage: 2 MG, UNK
     Route: 048
  75. SILECE [Concomitant]
     Dosage: 1 MG, UNK
     Route: 048
  76. MYSLEE [Concomitant]
     Dosage: 10 MG, UNK
     Route: 048
  77. CALONAL [Concomitant]
     Indication: PROPHYLAXIS
     Route: 048
     Dates: start: 20091127, end: 20091127
  78. LAXOBERON [Concomitant]
     Indication: PROPHYLAXIS
     Route: 048
     Dates: start: 20091127, end: 20091127
  79. MAXIPIME [Concomitant]
     Indication: PROPHYLAXIS
     Dosage: 4 G, UNK
     Route: 041
     Dates: start: 20091202, end: 20091215
  80. PRIMPERAN TAB [Concomitant]
     Dosage: 10 MG, UNK
     Route: 048
  81. DIAMOX SODIUM [Concomitant]
     Dosage: 250 MG, UNK
  82. LEUPLIN [Concomitant]
     Dosage: 1.88 MG, UNK
     Route: 042
     Dates: start: 20090508, end: 20090709
  83. GRAN [Concomitant]
     Indication: PROPHYLAXIS
     Dosage: 300 UG, UNK
     Dates: start: 20090516, end: 20090520
  84. HUMULIN R [Concomitant]
     Dosage: 10 DF, UNK
  85. NOVO HEPARIN [Concomitant]
     Indication: PROPHYLAXIS
     Dosage: 1000 DF, UNK
     Dates: start: 20090613, end: 20090617
  86. HIRNAMIN [Concomitant]
     Dosage: 5 MG, UNK
     Route: 048
     Dates: start: 20090515, end: 20090519
  87. STI571/CGP57148B [Suspect]
     Dosage: 600 MG, DAILY
     Route: 048
     Dates: start: 20090718, end: 20090806
  88. STI571/CGP57148B [Suspect]
     Dosage: 600 MG, DAILY
     Route: 048
     Dates: start: 20100112, end: 20100208
  89. SILECE [Concomitant]
     Dosage: 1 MG, UNK
     Route: 048
  90. OZEX [Concomitant]
     Indication: PROPHYLAXIS
     Dosage: 30 MG, UNK
     Route: 048
     Dates: start: 20090430, end: 20091202
  91. PRIMPERAN TAB [Concomitant]
     Dosage: 20 MG, UNK
     Route: 048
  92. DIAMOX SODIUM [Concomitant]
     Dosage: 500 MG, UNK
  93. LEUCOVORIN [Concomitant]
     Dosage: 96 MG, UNK
  94. CONTOMIN [Concomitant]
     Indication: PROPHYLAXIS
     Dosage: 5 MG, UNK
     Route: 042
     Dates: end: 20090626
  95. ADONA [Concomitant]
     Indication: PROPHYLAXIS
     Dosage: 100 MG, UNK
     Dates: start: 20090508, end: 20090511
  96. NOVO HEPARIN [Concomitant]
     Dosage: 2000 DF, UNK
  97. PAXIL [Concomitant]
     Dosage: 20 MG, UNK
     Route: 048
     Dates: start: 20090430, end: 20090918
  98. PAXIL [Concomitant]
     Dosage: 15 MG, UNK
     Route: 048
  99. GASMOTIN [Concomitant]
     Indication: PROPHYLAXIS
     Dosage: 15 MG, UNK
     Route: 048
     Dates: start: 20090430, end: 20090527
  100. GABAPENTIN [Concomitant]
     Indication: PROPHYLAXIS
     Dosage: 600 MG, UNK
     Route: 048
     Dates: start: 20090624, end: 20090804
  101. STI571/CGP57148B [Suspect]
     Dosage: 600 MG, DAILY
     Route: 048
     Dates: start: 20091002
  102. PREDONINE [Concomitant]
     Dosage: 2.5 MG, UNK
     Route: 048
  103. PREDONINE [Concomitant]
     Dosage: 85 MG, UNK
     Route: 048
  104. PREDONINE [Concomitant]
     Dosage: 85 MG, UNK
     Route: 048
  105. SILECE [Concomitant]
     Dosage: 1 MG, UNK
     Route: 048
  106. LASIX [Concomitant]
     Dosage: 20 MG, UNK
     Dates: start: 20090514, end: 20090706
  107. PRIMPERAN TAB [Concomitant]
     Dosage: 10 MG, UNK
     Route: 048
  108. POLARAMINE [Concomitant]
     Indication: ACUTE LYMPHOCYTIC LEUKAEMIA
     Dosage: 5 MG, UNK
     Route: 065
     Dates: start: 20090513, end: 20091010
  109. LEUCOVORIN [Concomitant]
     Indication: ACUTE LYMPHOCYTIC LEUKAEMIA
     Dosage: 24 MG, UNK
     Dates: start: 20090620, end: 20091002
  110. LEUCOVORIN [Concomitant]
     Dosage: 96 MG, UNK
  111. MINERAMIC [Concomitant]
     Indication: PROPHYLAXIS
     Dosage: 2 ML, UNK
     Dates: start: 20090507, end: 20090605
  112. PAXIL [Concomitant]
     Dosage: 15 MG, UNK
     Route: 048
  113. TAMSULOSIN HCL [Concomitant]
     Indication: PROPHYLAXIS
     Dosage: 0.1 MG, UNK
     Route: 048
     Dates: start: 20090522, end: 20090624
  114. MUCODYNE [Concomitant]
     Indication: PROPHYLAXIS
     Dosage: 750 MG, UNK
     Route: 048
     Dates: start: 20090525, end: 20090610
  115. METHYCOBAL [Concomitant]
     Indication: PROPHYLAXIS
     Dosage: 1.5 MG, UNK
     Route: 048
     Dates: start: 20090607, end: 20090624

REACTIONS (2)
  - MENINGITIS HERPES [None]
  - PANCYTOPENIA [None]
